FAERS Safety Report 14511426 (Version 1)
Quarter: 2018Q1

REPORT INFORMATION
  Report Type: Spontaneous
  Country: None (occurrence: IT)
  Receive Date: 20180209
  Receipt Date: 20180209
  Transmission Date: 20180509
  Serious: Yes (Other)
  Sender: FDA-Public Use
  Company Number: IT-MEDAC PHARMA, INC.-2041702

PATIENT

DRUGS (1)
  1. METHOTREXATE. [Suspect]
     Active Substance: METHOTREXATE

REACTIONS (3)
  - Neurotoxicity [Unknown]
  - Nephropathy toxic [Unknown]
  - Hepatotoxicity [Unknown]
